FAERS Safety Report 5076080-X (Version None)
Quarter: 2006Q3

REPORT INFORMATION
  Report Type: 
  Country: None (occurrence: None)
  Receive Date: 20060809
  Receipt Date: 20060105
  Transmission Date: 20061208
  Serious: No
  Sender: FDA-Public Use
  Company Number: US-AMGEN-KDL164057

PATIENT
  Age: 74 Year
  Sex: Female
  Weight: 55.8 kg

DRUGS (1)
  1. PROCRIT [Suspect]
     Indication: MYELODYSPLASTIC SYNDROME
     Route: 058
     Dates: start: 19940101

REACTIONS (2)
  - CATARACT [None]
  - INJECTION SITE PAIN [None]
